FAERS Safety Report 7209749-9 (Version None)
Quarter: 2011Q1

REPORT INFORMATION
  Report Type: 
  Country: None (occurrence: None)
  Receive Date: 20110104
  Receipt Date: 20101223
  Transmission Date: 20110831
  Serious: Yes (Hospitalization)
  Sender: FDA-Public Use
  Company Number: JP-GILEAD-2010-0034614

PATIENT
  Age: 39 Year
  Sex: Male

DRUGS (3)
  1. NORVIR [Concomitant]
     Indication: HIV INFECTION
     Dates: start: 20090325, end: 20100107
  2. LEXIVA [Concomitant]
     Dates: start: 20090325, end: 20100107
  3. TRUVADA [Suspect]
     Indication: HIV INFECTION
     Route: 048
     Dates: start: 20090325, end: 20100107

REACTIONS (1)
  - NEPHROTIC SYNDROME [None]
